FAERS Safety Report 22976299 (Version 3)
Quarter: 2023Q4

REPORT INFORMATION
  Report Type: Report from Study
  Country: CA (occurrence: CA)
  Receive Date: 20230925
  Receipt Date: 20231214
  Transmission Date: 20240110
  Serious: Yes (Other)
  Sender: FDA-Public Use
  Company Number: CA-JNJFOC-20230938382

PATIENT
  Age: 40 Year
  Sex: Female
  Weight: 225 kg

DRUGS (2)
  1. SIMPONI [Suspect]
     Active Substance: GOLIMUMAB
     Indication: Psoriatic arthropathy
     Route: 041
  2. SIMPONI [Suspect]
     Active Substance: GOLIMUMAB
     Dosage: WAS ADMINISTERED AT LAST INFUSION ON 12-OCT- 2023
     Route: 041

REACTIONS (5)
  - Vaginal haemorrhage [Recovering/Resolving]
  - Uterine dilation and curettage [Recovered/Resolved]
  - Abdominal discomfort [Not Recovered/Not Resolved]
  - Pelvic pain [Not Recovered/Not Resolved]
  - Off label use [Unknown]

NARRATIVE: CASE EVENT DATE: 20230826
